FAERS Safety Report 20957285 (Version 8)
Quarter: 2024Q1

REPORT INFORMATION
  Report Type: Spontaneous
  Country: US (occurrence: US)
  Receive Date: 20220614
  Receipt Date: 20240202
  Transmission Date: 20240410
  Serious: Yes (Hospitalization, Other)
  Sender: FDA-Public Use
  Company Number: US-PFIZER INC-PV202200000074

PATIENT
  Age: 74 Year
  Sex: Female
  Weight: 63.946 kg

DRUGS (27)
  1. TIKOSYN [Suspect]
     Active Substance: DOFETILIDE
     Indication: Atrial fibrillation
     Dosage: 25 MG, 2X/DAY
     Dates: start: 202203
  2. TIKOSYN [Suspect]
     Active Substance: DOFETILIDE
     Indication: Atrial fibrillation
     Dosage: TAKE 1 CAPSULE 2 TIMES DAILY
     Route: 048
     Dates: start: 20220908
  3. TIKOSYN [Suspect]
     Active Substance: DOFETILIDE
     Dosage: 250 UG, 2X/DAY, TAKE 1 CAPSULE BY MOUTH
     Route: 048
     Dates: start: 20240119
  4. AMOXICILLIN [Concomitant]
     Active Substance: AMOXICILLIN
     Indication: Infection
     Dosage: 500 MG, 3X/DAY
  5. ALBUTEROL SULFATE\IPRATROPIUM BROMIDE [Concomitant]
     Active Substance: ALBUTEROL SULFATE\IPRATROPIUM BROMIDE
     Indication: Dyspnoea
     Dosage: UNK, 2X/DAY
  6. AVAPRO [Concomitant]
     Active Substance: IRBESARTAN
     Dosage: 75 MG, 1X/DAY
  7. PANTOPRAZOLE [Concomitant]
     Active Substance: PANTOPRAZOLE
     Dosage: 40 MG, 1X/DAY (AM)
  8. LASIX [Concomitant]
     Active Substance: FUROSEMIDE
     Dosage: 40 MG, (1,2 X DAY)
  9. ELIQUIS [Concomitant]
     Active Substance: APIXABAN
     Dosage: 5 MG, (1,2 X DAY)
  10. SINGULAIR [Concomitant]
     Active Substance: MONTELUKAST SODIUM
     Dosage: 10 MG, 1X/DAY (PM)
  11. SYMBICORT [Concomitant]
     Active Substance: BUDESONIDE\FORMOTEROL FUMARATE DIHYDRATE
     Dosage: UNK, 2X/DAY, 160/4.5 MCG
  12. IPRATROPIUM [Concomitant]
     Active Substance: IPRATROPIUM
     Dosage: UNK, 2X/DAY
  13. DULOXETINE [Concomitant]
     Active Substance: DULOXETINE
     Dosage: 30 MG, (1,2 X DAY)
  14. CELEBREX [Concomitant]
     Active Substance: CELECOXIB
     Dosage: 100 MG (1, 2 X DAY)
  15. OXYCODONE [Concomitant]
     Active Substance: OXYCODONE\OXYCODONE HYDROCHLORIDE
     Dosage: 10 MG (1, 4 X DAY)
  16. MUCINEX [Concomitant]
     Active Substance: GUAIFENESIN
     Dosage: UNK, 1200 (1,2 X DAY)
  17. PROLIA [Concomitant]
     Active Substance: DENOSUMAB
     Dosage: UNK (2 X YEAR)
  18. METHOCARBAMOL [Concomitant]
     Active Substance: METHOCARBAMOL
     Dosage: 750 MG, AS NEEDED
  19. ALBUTEROL SULFATE [Concomitant]
     Active Substance: ALBUTEROL SULFATE
     Dosage: 90 MG, AS NEEDED
  20. CHOLECALCIFEROL [Concomitant]
     Active Substance: CHOLECALCIFEROL
     Dosage: 5000, 1X/DAY (PM)
  21. CALCIUM [Concomitant]
     Active Substance: CALCIUM
     Dosage: 500 MG (1, 3 X DAY)
  22. VITAMIN COMPLEX [Concomitant]
     Dosage: 1, 2 X DAY
  23. VITAMIN C [Concomitant]
     Active Substance: ASCORBIC ACID
     Dosage: 1000 MG, 1X/DAY
  24. FERROUS SULFATE [Concomitant]
     Active Substance: FERROUS SULFATE
     Dosage: 325 MG, ALTERNATE DAY, (1 EVERY OTHER DAY)
  25. TOBRAMYCIN [Concomitant]
     Active Substance: TOBRAMYCIN
     Dosage: UNK, (2 X DAY / 28 DAYS ON, 28 DAYS OFF )
  26. SUMATRIPTAN [Concomitant]
     Active Substance: SUMATRIPTAN
     Dosage: 50 MG (1, THEN 1 AFTER 2 HOURS IF NEEDED)
  27. BENZONATATE [Concomitant]
     Active Substance: BENZONATATE
     Dosage: 100 MG (1, 3 X DAY)

REACTIONS (5)
  - Bronchiectasis [Unknown]
  - Lung disorder [Unknown]
  - Pulmonary congestion [Unknown]
  - Off label use [Unknown]
  - Product prescribing error [Unknown]
